FAERS Safety Report 24071205 (Version 1)
Quarter: 2024Q3

REPORT INFORMATION
  Report Type: Report from Study
  Country: PY (occurrence: PY)
  Receive Date: 20240710
  Receipt Date: 20240710
  Transmission Date: 20241017
  Serious: No
  Sender: ROCHE
  Company Number: PY-ROCHE-3560436

PATIENT
  Age: 2 Year
  Sex: Female
  Weight: 10.55 kg

DRUGS (1)
  1. EVRYSDI [Suspect]
     Active Substance: RISDIPLAM
     Indication: Spinal muscular atrophy
     Dosage: RISDIPLAM 60 MG/80 ML - RECONSTITUTED POWDER - NASOGASTRIC TUBE
     Route: 065
     Dates: start: 20220811

REACTIONS (2)
  - Cough [Recovered/Resolved]
  - Pyrexia [Recovered/Resolved]

NARRATIVE: CASE EVENT DATE: 20240417
